FAERS Safety Report 8255157-1 (Version None)
Quarter: 2012Q2

REPORT INFORMATION
  Report Type: 
  Country: None (occurrence: None)
  Receive Date: 20120403
  Receipt Date: 20120327
  Transmission Date: 20120825
  Serious: Yes (Hospitalization)
  Sender: FDA-Public Use
  Company Number: 2012SP000956

PATIENT
  Age: 89 Year
  Sex: Male

DRUGS (8)
  1. ALL OTHER THERAPEUTIC PRODUCTS [Concomitant]
     Indication: ANTICOAGULANT THERAPY
  2. ALL OTHER THERAPEUTIC PRODUCTS [Concomitant]
     Indication: THYROID DISORDER
  3. ANTIHYPERTENSIVES [Concomitant]
     Indication: HYPERTENSION
  4. PLAVIX [Concomitant]
     Indication: CORONARY ARTERY DISEASE
  5. PRILOSEC /00661203/ [Concomitant]
     Indication: PRODUCT USED FOR UNKNOWN INDICATION
  6. ALL OTHER THERAPEUTIC PRODUCTS [Concomitant]
     Indication: BLOOD CHOLESTEROL ABNORMAL
  7. XOPENEX [Suspect]
     Indication: DYSPNOEA
     Route: 055
     Dates: start: 20120325
  8. ATROVENT [Concomitant]
     Indication: DYSPNOEA

REACTIONS (4)
  - CHEST DISCOMFORT [None]
  - DYSPNOEA [None]
  - CHEST PAIN [None]
  - MYOCARDIAL INFARCTION [None]
